FAERS Safety Report 16791896 (Version 1)
Quarter: 2019Q3

REPORT INFORMATION
  Report Type: Spontaneous
  Country: DK (occurrence: DK)
  Receive Date: 20190910
  Receipt Date: 20190910
  Transmission Date: 20191005
  Serious: Yes (Hospitalization)
  Sender: FDA-Public Use
  Company Number: DK-MYLANLABS-2019M1084703

PATIENT
  Age: 53 Year
  Sex: Female

DRUGS (2)
  1. NAPROXEN MYLAN [Suspect]
     Active Substance: NAPROXEN
     Indication: ANALGESIC THERAPY
  2. NAPROXEN MYLAN [Suspect]
     Active Substance: NAPROXEN
     Indication: LIGAMENT SPRAIN
     Dosage: 500 MILLIGRAM, BID

REACTIONS (4)
  - Blood pressure systolic decreased [Unknown]
  - Haematemesis [Unknown]
  - Heart rate increased [Unknown]
  - Ulcer haemorrhage [Unknown]
